FAERS Safety Report 19701348 (Version 1)
Quarter: 2021Q3

REPORT INFORMATION
  Report Type: Report from Study
  Country: US (occurrence: US)
  Receive Date: 20210813
  Receipt Date: 20210813
  Transmission Date: 20211014
  Serious: Yes (Other)
  Sender: FDA-Public Use
  Company Number: NVSC2021US178779

PATIENT
  Sex: Female

DRUGS (1)
  1. MAYZENT [Suspect]
     Active Substance: SIPONIMOD
     Indication: MULTIPLE SCLEROSIS
     Dosage: UNK
     Route: 065

REACTIONS (16)
  - Musculoskeletal stiffness [Unknown]
  - Gait disturbance [Unknown]
  - Multiple sclerosis relapse [Unknown]
  - Hypoaesthesia [Unknown]
  - Disturbance in attention [Unknown]
  - Hypothyroidism [Unknown]
  - Paraesthesia [Unknown]
  - Memory impairment [Unknown]
  - Asthenia [Unknown]
  - Fatigue [Unknown]
  - Vitamin D decreased [Unknown]
  - Product dose omission issue [Unknown]
  - Central nervous system lesion [Unknown]
  - Limb discomfort [Unknown]
  - Incorrect dose administered [Unknown]
  - Temperature intolerance [Unknown]
